FAERS Safety Report 11133372 (Version 1)
Quarter: 2015Q2

REPORT INFORMATION
  Report Type: Spontaneous
  Country: US (occurrence: US)
  Receive Date: 20150522
  Receipt Date: 20150522
  Transmission Date: 20150821
  Serious: No
  Sender: FDA-Public Use
  Company Number: US-MALLINCKRODT-QSC-2014-0465

PATIENT
  Age: 58 Year
  Sex: Male

DRUGS (5)
  1. TYSABRI [Concomitant]
     Active Substance: NATALIZUMAB
     Dosage: UNK
  2. METOPROLOL [Concomitant]
     Active Substance: METOPROLOL
     Dosage: UNK
  3. H.P. ACTHAR [Suspect]
     Active Substance: CORTICOTROPIN
     Indication: MULTIPLE SCLEROSIS
     Dosage: 80 UNITS, QD
     Route: 058
     Dates: start: 20140714
  4. FOLIC ACID. [Concomitant]
     Active Substance: FOLIC ACID
     Dosage: UNK
  5. LIPOFLAVONOID                      /08186801/ [Concomitant]
     Dosage: UNK

REACTIONS (1)
  - Injection site swelling [Recovering/Resolving]

NARRATIVE: CASE EVENT DATE: 20140715
